FAERS Safety Report 7064074-4 (Version None)
Quarter: 2010Q4

REPORT INFORMATION
  Report Type: 
  Country: None (occurrence: None)
  Receive Date: 20101027
  Receipt Date: 20100412
  Transmission Date: 20110411
  Serious: Yes (Other)
  Sender: FDA-Public Use
  Company Number: US-ASTRAZENECA-2009UW18002

PATIENT
  Age: 15476 Day
  Sex: Female

DRUGS (10)
  1. SEROQUEL [Suspect]
     Route: 048
     Dates: start: 20040828, end: 20090420
  2. HYDROCODONE BITARTRATE + ACETAMINOPHEN [Concomitant]
     Dosage: 5-500 MG
     Dates: start: 20040828
  3. SYNTHROID [Concomitant]
     Route: 048
     Dates: start: 20070214
  4. CLARINEX D [Concomitant]
     Route: 048
     Dates: start: 20070214
  5. NEXIUM [Concomitant]
     Route: 048
     Dates: start: 20070214
  6. WELLBUTRIN [Concomitant]
     Dosage: 2 TABS QD
     Route: 048
     Dates: start: 20070214
  7. BAYER ASA [Concomitant]
     Route: 048
     Dates: start: 20070214
  8. TRAZODONE [Concomitant]
     Dates: start: 20040924
  9. PAXIL CR [Concomitant]
     Dates: start: 20040924
  10. BUDEPRION [Concomitant]
     Dates: start: 20040924

REACTIONS (2)
  - DIABETES MELLITUS [None]
  - DIABETIC NEUROPATHY [None]
